FAERS Safety Report 5419671-6 (Version None)
Quarter: 2007Q3

REPORT INFORMATION
  Report Type: 
  Country: None (occurrence: None)
  Receive Date: 20070820
  Receipt Date: 20070813
  Transmission Date: 20080115
  Serious: Yes (Hospitalization)
  Sender: FDA-Public Use
  Company Number: HQWYE529713AUG07

PATIENT
  Age: 64 Year
  Sex: Female

DRUGS (5)
  1. HYPEN [Suspect]
     Indication: DRUG USE FOR UNKNOWN INDICATION
     Dosage: DAILY DOSE NOT SPECIFIED
     Route: 048
     Dates: start: 20070713, end: 20070717
  2. ATORVASTATIN CALCIUM [Concomitant]
  3. ROSUVASTATIN [Concomitant]
  4. AMLODIPINE BESYLATE [Concomitant]
  5. FEXOFENADINE HYDROCHLORIDE [Concomitant]

REACTIONS (4)
  - ABDOMINAL PAIN UPPER [None]
  - ALANINE AMINOTRANSFERASE INCREASED [None]
  - ASPARTATE AMINOTRANSFERASE INCREASED [None]
  - GAMMA-GLUTAMYLTRANSFERASE INCREASED [None]
